FAERS Safety Report 23985550 (Version 1)
Quarter: 2024Q2

REPORT INFORMATION
  Report Type: Spontaneous
  Country: US (occurrence: US)
  Receive Date: 20240618
  Receipt Date: 20240618
  Transmission Date: 20240716
  Serious: No
  Sender: FDA-Public Use
  Company Number: US-TEVA-VS-3206994

PATIENT
  Age: 77 Year
  Sex: Female

DRUGS (1)
  1. AUSTEDO [Suspect]
     Active Substance: DEUTETRABENAZINE
     Indication: Product used for unknown indication
     Dosage: 12 MG 2 TABLETS TWICE DAILY
     Route: 048

REACTIONS (3)
  - Product use issue [Unknown]
  - Withdrawal syndrome [Unknown]
  - Product dose omission issue [Unknown]
